FAERS Safety Report 19606059 (Version 1)
Quarter: 2021Q3

REPORT INFORMATION
  Report Type: Report from Study
  Country: None (occurrence: CO)
  Receive Date: 20210723
  Receipt Date: 20210723
  Transmission Date: 20211014
  Serious: Yes (Other)
  Sender: FDA-Public Use
  Company Number: CO-ABBVIE-21K-036-3732101-00

PATIENT
  Sex: Female
  Weight: 70 kg

DRUGS (4)
  1. COVID?19 VACCINE [Concomitant]
     Indication: COVID-19 IMMUNISATION
     Route: 030
     Dates: start: 2021, end: 2021
  2. HUMIRA [Suspect]
     Active Substance: ADALIMUMAB
     Indication: RHEUMATOID ARTHRITIS
     Route: 058
     Dates: start: 20100830
  3. HUMIRA [Suspect]
     Active Substance: ADALIMUMAB
     Route: 058
     Dates: end: 20210615
  4. HUMIRA [Suspect]
     Active Substance: ADALIMUMAB
     Indication: RHEUMATOID ARTHRITIS
     Route: 058
     Dates: end: 20201120

REACTIONS (10)
  - Memory impairment [Recovering/Resolving]
  - Hypersensitivity [Recovered/Resolved]
  - Hypercholesterolaemia [Not Recovered/Not Resolved]
  - Discomfort [Recovered/Resolved]
  - Inappropriate schedule of product administration [Unknown]
  - Rheumatoid arthritis [Not Recovered/Not Resolved]
  - Overweight [Recovering/Resolving]
  - Hypothyroidism [Not Recovered/Not Resolved]
  - Influenza [Recovered/Resolved]
  - Rhinorrhoea [Recovered/Resolved]

NARRATIVE: CASE EVENT DATE: 2010
